FAERS Safety Report 7075472-7 (Version None)
Quarter: 2010Q4

REPORT INFORMATION
  Report Type: 
  Country: None (occurrence: None)
  Receive Date: 20101030
  Receipt Date: 20100909
  Transmission Date: 20110411
  Serious: No
  Sender: FDA-Public Use
  Company Number: US-WYE-H17498810

PATIENT
  Sex: Female
  Weight: 68.1 kg

DRUGS (1)
  1. PRISTIQ [Suspect]
     Indication: DEPRESSION
     Dates: start: 20100906

REACTIONS (2)
  - DRY MOUTH [None]
  - URINE ODOUR ABNORMAL [None]
